FAERS Safety Report 4845729-6 (Version None)
Quarter: 2005Q4

REPORT INFORMATION
  Report Type: 
  Country: None (occurrence: None)
  Receive Date: 20051206
  Receipt Date: 20051128
  Transmission Date: 20060501
  Serious: Yes (Death, Hospitalization)
  Sender: FDA-Public Use
  Company Number: US-JNJFOC-20051200227

PATIENT
  Sex: Female

DRUGS (7)
  1. TYLENOL [Suspect]
  2. TYLENOL [Suspect]
     Indication: SUICIDE ATTEMPT
  3. EXCEDRIN (MIGRAINE) [Suspect]
  4. EXCEDRIN (MIGRAINE) [Suspect]
  5. EXCEDRIN (MIGRAINE) [Suspect]
  6. EXCEDRIN (MIGRAINE) [Suspect]
     Indication: SUICIDE ATTEMPT
  7. LEXAPRO [Suspect]
     Indication: DEPRESSION

REACTIONS (3)
  - COMPLETED SUICIDE [None]
  - INJURY [None]
  - OVERDOSE [None]
